FAERS Safety Report 24825129 (Version 1)
Quarter: 2025Q1

REPORT INFORMATION
  Report Type: Spontaneous
  Country: US (occurrence: None)
  Receive Date: 20250108
  Receipt Date: 20250108
  Transmission Date: 20250409
  Serious: Yes (Life-Threatening)
  Sender: FDA-CTU
  Company Number: None

PATIENT

DRUGS (1)
  1. CILTACABTAGENE AUTOLEUCEL [Suspect]
     Active Substance: CILTACABTAGENE AUTOLEUCEL

REACTIONS (4)
  - Pancytopenia [None]
  - Myelodysplastic syndrome [None]
  - Acute myeloid leukaemia [None]
  - Lymphocyte adoptive therapy [None]

NARRATIVE: CASE EVENT DATE: 20241028
